FAERS Safety Report 6684415-7 (Version None)
Quarter: 2010Q2

REPORT INFORMATION
  Report Type: 
  Country: None (occurrence: None)
  Receive Date: 20100416
  Receipt Date: 20100407
  Transmission Date: 20101027
  Serious: Yes (Other)
  Sender: FDA-Public Use
  Company Number: AU-PFIZER INC-2010043487

PATIENT
  Age: 80 Year
  Sex: Male

DRUGS (2)
  1. LIPITOR [Suspect]
     Dosage: 10 MG, 1X/DAY AT DINNER TIME
  2. COVERSYL [Concomitant]
     Dosage: UNK

REACTIONS (2)
  - INSOMNIA [None]
  - PALPITATIONS [None]
